FAERS Safety Report 5654276-3 (Version None)
Quarter: 2008Q1

REPORT INFORMATION
  Report Type: 
  Country: None (occurrence: None)
  Receive Date: 20080306
  Receipt Date: 20080227
  Transmission Date: 20080703
  Serious: Yes (Hospitalization)
  Sender: FDA-Public Use
  Company Number: FR-ABBOTT-08P-056-0440249-00

PATIENT
  Sex: Female

DRUGS (2)
  1. ZECLAR [Suspect]
     Indication: MYCOBACTERIUM MARINUM INFECTION
     Route: 048
     Dates: start: 20071129, end: 20080130
  2. MINOCYCLINE HCL [Suspect]
     Indication: MYCOBACTERIUM MARINUM INFECTION
     Route: 048
     Dates: start: 20071129, end: 20080122

REACTIONS (4)
  - COAGULOPATHY [None]
  - DIARRHOEA [None]
  - ECCHYMOSIS [None]
  - PROTHROMBIN TIME SHORTENED [None]
